FAERS Safety Report 11088334 (Version 1)
Quarter: 2015Q2

REPORT INFORMATION
  Report Type: Spontaneous
  Country: PT (occurrence: PT)
  Receive Date: 20150504
  Receipt Date: 20150504
  Transmission Date: 20150821
  Serious: Yes (Death, Hospitalization)
  Sender: FDA-Public Use
  Company Number: PT-PFIZER INC-2015143771

PATIENT
  Age: 82 Year
  Sex: Male

DRUGS (11)
  1. PANTOPRAZOLE SODIUM. [Concomitant]
     Active Substance: PANTOPRAZOLE SODIUM
     Dosage: 1 DF, 1X/DAY
     Route: 065
  2. TRANSTEC [Concomitant]
     Active Substance: BUPRENORPHINE
     Dosage: 1 DF (35UG/H), 1X/DAY
     Route: 065
  3. LOSARTAN [Concomitant]
     Active Substance: LOSARTAN
     Dosage: 1 DF, 1X/DAY
     Route: 065
  4. FOLIFER [Concomitant]
     Dosage: 1 DF, 1X/DAY
     Route: 065
  5. SUTENT [Suspect]
     Active Substance: SUNITINIB MALATE
     Indication: NEUROENDOCRINE CARCINOMA
  6. LERCANIDIPINE [Concomitant]
     Active Substance: LERCANIDIPINE
     Dosage: 1 DF, 1X/DAY
     Route: 065
  7. INEGY [Concomitant]
     Active Substance: EZETIMIBE\SIMVASTATIN
     Dosage: 1 DF, 1X/DAY
     Route: 065
  8. XANAX [Concomitant]
     Active Substance: ALPRAZOLAM
     Dosage: 1 DF, 1X/DAY
     Route: 065
  9. SUTENT [Suspect]
     Active Substance: SUNITINIB MALATE
     Indication: RENAL CANCER
     Dosage: 50 MG, 1X/DAY
     Route: 048
     Dates: start: 20140122
  10. TROMALYT [Concomitant]
     Active Substance: ASPIRIN
     Dosage: 1 DF, 1X/DAY
     Route: 065
  11. ALOPURINOL [Concomitant]
     Active Substance: ALLOPURINOL
     Dosage: 1 DF, 1X/DAY
     Route: 065

REACTIONS (5)
  - Depressed mood [Fatal]
  - Jaundice [Fatal]
  - Discomfort [Fatal]
  - General physical health deterioration [Fatal]
  - Speech disorder [Fatal]

NARRATIVE: CASE EVENT DATE: 2014
